FAERS Safety Report 17501099 (Version 1)
Quarter: 2020Q1

REPORT INFORMATION
  Report Type: Spontaneous
  Country: US (occurrence: US)
  Receive Date: 20200305
  Receipt Date: 20200305
  Transmission Date: 20200409
  Serious: No
  Sender: FDA-Public Use
  Company Number: US-GLAXOSMITHKLINE-US2020038741

PATIENT
  Sex: Female

DRUGS (1)
  1. LAMISIL AT CONTINUOUS SPRAY [Suspect]
     Active Substance: TERBINAFINE HYDROCHLORIDE
     Indication: PRODUCT USED FOR UNKNOWN INDICATION
     Dosage: UNK

REACTIONS (5)
  - Product complaint [Unknown]
  - Skin laceration [Unknown]
  - Skin haemorrhage [Unknown]
  - Wrong technique in product usage process [Unknown]
  - Product package associated injury [Unknown]

NARRATIVE: CASE EVENT DATE: 20200228
